FAERS Safety Report 7761459-5 (Version None)
Quarter: 2011Q3

REPORT INFORMATION
  Report Type: 
  Country: None (occurrence: None)
  Receive Date: 20110920
  Receipt Date: 20110916
  Transmission Date: 20111222
  Serious: Yes (Death)
  Sender: FDA-Public Use
  Company Number: US-JNJFOC-20110904521

PATIENT

DRUGS (23)
  1. VINCRISTINE [Suspect]
     Dosage: MAX 2MG ON DAYS 1, 8, 15 AND 22 (INDUCTION PHASE WEEKS: 1-4)
     Route: 042
  2. ELSPAR [Suspect]
     Indication: ACUTE LYMPHOCYTIC LEUKAEMIA
     Dosage: 15,000 IU/M2, ON DAYS 2, 12, 22, 32, 42(INTERIM MAINTENANCE: WEEKS 15-22; REPEAT ON WEEKS 31-38)
     Route: 030
  3. METHOTREXATE [Suspect]
     Dosage: ON DAYS 1, 11, 21, 31 AND 41; (INTERIM MAINTENANCE PHASE: WK 15-22; REPEAT ON WEEKS 31-38)
     Route: 042
  4. CYTARABINE [Suspect]
     Indication: ACUTE LYMPHOCYTIC LEUKAEMIA
     Dosage: ON DAYS 30-33, 37-40 (DELAYED INTENSIFICATION: WK 23-30; REPEAT WEEKS 39-46)
     Route: 065
  5. VINCRISTINE [Suspect]
     Indication: ACUTE LYMPHOCYTIC LEUKAEMIA
     Dosage: MAX 2 MG, ON DAYS 15, 22, 43 AND 50 (CONSOLIDATION PHASE WEEKS 6-14)
     Route: 042
  6. ELSPAR [Suspect]
     Dosage: 10, 000 IU/M2, ON DAYS 2, 5, 8, 12, 15, 19 (INDUCTION PHASE: 1-4 WEEKS)
     Route: 030
  7. MERCAPTOPURINE [Suspect]
     Indication: ACUTE LYMPHOCYTIC LEUKAEMIA
     Dosage: ON DAYS 1-14, 29-42 (CONSOLIDATION PHASE WK 6-14)
     Route: 048
  8. VINCRISTINE [Suspect]
     Dosage: MAX 2 MG, ON DAYS 15, 22, 43 AND 50 (CONSOLIDATION PHASE WEEKS 6-14)
     Route: 042
  9. CYTARABINE [Suspect]
     Dosage: ON DAYS 2-5, 9-12, 30-33, 37-40(CONSOLIDATION PHASE: WK 6-14)
     Route: 065
  10. ELSPAR [Suspect]
     Dosage: 6,000 IU/M2, ON DAYS 4, 6, 8, 11, 13, 15, 43, 45, 47, 50, 52, 54 (DEL INT : WK 23-30; REPT WK 39-36)
     Route: 030
  11. DAUNORUBICIN HCL [Suspect]
     Indication: ACUTE LYMPHOCYTIC LEUKAEMIA
     Dosage: ON DAYS 8, 15 AND 22 (DRUG INDUCTION PHASE: WK 1-4)
     Route: 042
  12. METHOTREXATE [Suspect]
     Dosage: AGE ADJUSTED DOSES, ON DAYS 1, 15, 29, 43 (CONSOLIDATION PHASE: WK 6-14)
     Route: 037
  13. THIOGUANINE [Suspect]
     Indication: ACUTE LYMPHOCYTIC LEUKAEMIA
     Dosage: ON DAYS 29-42 (DELAYED INTENSIFICATION: WK 23-30; REPEAT WEEKS 39-46)
     Route: 048
  14. METHOTREXATE [Suspect]
     Dosage: AGE ADJUSTED DOSES, ON DAYS 1 AND 29 (DELAYED INTENSIFICATION PHASE: WK 23-30;REPEAT ON WEEKS 39-46)
     Route: 037
  15. METHOTREXATE [Suspect]
     Indication: ACUTE LYMPHOCYTIC LEUKAEMIA
     Dosage: AGE ADJUSTED DOSES, ON DAYS 1, 8: ALSO ON DAYS 15, 22 IF CNS RELAPSE 2 OR 3 (INDUCTION PHASE:WK 1-4)
     Route: 037
  16. CYCLOPHOSPHAMIDE [Suspect]
     Indication: ACUTE LYMPHOCYTIC LEUKAEMIA
     Dosage: ON DAY 29 (DELAYED INTENSIFICATION PHASE WK 23-30; REPEAT WEEKS 39-46)
     Route: 042
  17. DEXAMETHASONE [Suspect]
     Indication: ACUTE LYMPHOCYTIC LEUKAEMIA
     Dosage: ON DAYS 1-7, 15-21 (DELAYED INTENSIFICATION PHASE: WEEKS 23-30; REPEAT WEEKS 39-46)
     Route: 048
  18. ELSPAR [Suspect]
     Dosage: 6,000 IU/M2, ON DAYS 15, 17, 19, 22, 24, 26, 43, 47, 50, 52, 54 (CONSOLIDATION PHASE: WEEKS 6-14)
     Route: 030
  19. METHOTREXATE [Suspect]
     Dosage: AGE ADJUSTED DOSES, ON DAYS 1 AND 31 (INTERIM MAINTENANCE PHASE: WK 15-22;REPEAT ON WEEKS 31-38)
     Route: 037
  20. CYCLOPHOSPHAMIDE [Suspect]
     Dosage: ON DAYS 1 AND 29 (CONSOLIDATION PHASE WK 6-14)
     Route: 042
  21. DOXORUBICIN HYDROCHLORIDE [Suspect]
     Indication: ACUTE LYMPHOCYTIC LEUKAEMIA
     Dosage: ON DAYS 1, 8 AND 15 (DELAYED INTENSIFICATION PHASE WEEKS 23-30, REPEAT WEEKS 39-46)
     Route: 042
  22. PREDNISONE [Suspect]
     Indication: ACUTE LYMPHOCYTIC LEUKAEMIA
     Dosage: MAX 60 MG, FROM 1-28 DAYS (DRUG INDUCTION PHASE: WK 1-4)
     Route: 048
  23. VINCRISTINE [Suspect]
     Dosage: MAX 2 MG, ON DAYS 1, 8, 15, 43, 50(DELAYED INTENSIFICATION PHASE: WEEKS 23-30; REPEAT WEEKS 39-46)
     Route: 042

REACTIONS (2)
  - HISTIOCYTOSIS HAEMATOPHAGIC [None]
  - OFF LABEL USE [None]
